FAERS Safety Report 18022333 (Version 5)
Quarter: 2020Q3

REPORT INFORMATION
  Report Type: Spontaneous
  Country: DE (occurrence: DE)
  Receive Date: 20200715
  Receipt Date: 20200903
  Transmission Date: 20201103
  Serious: Yes (Other)
  Sender: FDA-Public Use
  Company Number: DE-BEH-2020119926

PATIENT
  Age: 81 Year
  Sex: Male
  Weight: 105 kg

DRUGS (2)
  1. PRIVIGEN [Suspect]
     Active Substance: HUMAN IMMUNOGLOBULIN G
     Indication: CHRONIC INFLAMMATORY DEMYELINATING POLYRADICULONEUROPATHY
     Dosage: 80 GRAM, Q4W
     Route: 042
     Dates: start: 20200707, end: 20200707
  2. PRIVIGEN [Suspect]
     Active Substance: HUMAN IMMUNOGLOBULIN G
     Dosage: 80 GRAM (200 ML/H), TOT
     Route: 042
     Dates: start: 20200804, end: 20200804

REACTIONS (6)
  - Headache [Unknown]
  - Incorrect drug administration rate [Unknown]
  - Incorrect drug administration rate [Recovered/Resolved]
  - Eye pain [Recovered/Resolved]
  - Angina pectoris [Recovered/Resolved]
  - Headache [Recovered/Resolved]

NARRATIVE: CASE EVENT DATE: 20200707
